FAERS Safety Report 19842658 (Version 2)
Quarter: 2021Q3

REPORT INFORMATION
  Report Type: Spontaneous
  Country: JP (occurrence: JP)
  Receive Date: 20210916
  Receipt Date: 20210927
  Transmission Date: 20211014
  Serious: Yes (Hospitalization)
  Sender: FDA-Public Use
  Company Number: JP-BAYER-2021-210779

PATIENT
  Age: 4 Decade
  Sex: Male

DRUGS (4)
  1. KOVALTRY [Suspect]
     Active Substance: ANTIHEMOPHILIC FACTOR, HUMAN RECOMBINANT
     Indication: HAEMOPHILIA
     Dosage: UNK, ONCE
     Dates: start: 20210914, end: 20210914
  2. KOVALTRY [Suspect]
     Active Substance: ANTIHEMOPHILIC FACTOR, HUMAN RECOMBINANT
     Indication: HAEMOPHILIA
     Dosage: UNK
  3. KOVALTRY [Suspect]
     Active Substance: ANTIHEMOPHILIC FACTOR, HUMAN RECOMBINANT
     Indication: HAEMOPHILIA
     Dosage: UNK, ONCE
     Dates: start: 20210913, end: 20210913
  4. KOVALTRY [Suspect]
     Active Substance: ANTIHEMOPHILIC FACTOR, HUMAN RECOMBINANT
     Indication: HAEMOPHILIA
     Dosage: UNK, ONCE
     Dates: start: 20210915, end: 20210915

REACTIONS (1)
  - Epidural haemorrhage [Recovered/Resolved]

NARRATIVE: CASE EVENT DATE: 20210912
